FAERS Safety Report 8273870-7 (Version None)
Quarter: 2012Q2

REPORT INFORMATION
  Report Type: 
  Country: None (occurrence: None)
  Receive Date: 20120411
  Receipt Date: 20120403
  Transmission Date: 20120825
  Serious: Yes (Other)
  Sender: FDA-Public Use
  Company Number: US-FRI-1000029569

PATIENT
  Age: 26 Year
  Sex: Female

DRUGS (5)
  1. PROMETRIUM [Concomitant]
  2. THYROID TAB [Suspect]
     Indication: HYPOTHYROIDISM
  3. VIVELLE-DOT [Concomitant]
     Indication: CONTRACEPTION
  4. CORTISOL [Concomitant]
     Indication: BLOOD CORTISOL DECREASED
  5. THYROID TAB [Suspect]
     Indication: AUTOIMMUNE THYROIDITIS
     Dosage: 120 MG
     Route: 048
     Dates: start: 20120301, end: 20120301

REACTIONS (1)
  - HEART RATE INCREASED [None]
